FAERS Safety Report 7589966-9 (Version None)
Quarter: 2011Q3

REPORT INFORMATION
  Report Type: 
  Country: None (occurrence: None)
  Receive Date: 20110705
  Receipt Date: 20110614
  Transmission Date: 20111222
  Serious: Yes (Death, Hospitalization)
  Sender: FDA-Public Use
  Company Number: A0869763A

PATIENT
  Sex: Male
  Weight: 113.2 kg

DRUGS (8)
  1. GLYBURIDE [Concomitant]
  2. VYTORIN [Concomitant]
  3. METFORMIN HCL [Concomitant]
  4. TRICOR [Concomitant]
  5. AVANDIA [Suspect]
     Dosage: 4MG TWICE PER DAY
     Route: 048
     Dates: start: 20060919, end: 20081218
  6. XANAX [Concomitant]
  7. LISINOPRIL [Concomitant]
  8. SOMA [Concomitant]

REACTIONS (3)
  - CARDIAC FAILURE CONGESTIVE [None]
  - DEATH [None]
  - MYOCARDIAL INFARCTION [None]
